FAERS Safety Report 23127506 (Version 2)
Quarter: 2023Q4

REPORT INFORMATION
  Report Type: Report from Study
  Country: CH (occurrence: CH)
  Receive Date: 20231031
  Receipt Date: 20231201
  Transmission Date: 20240109
  Serious: Yes (Other)
  Sender: FDA-Public Use
  Company Number: CH-002147023-PHHY2015CH107231

PATIENT
  Sex: Female

DRUGS (3)
  1. GILENYA [Suspect]
     Active Substance: FINGOLIMOD HYDROCHLORIDE
     Indication: Product used for unknown indication
     Dosage: 0.5 MG, QD
     Route: 048
     Dates: start: 20130731, end: 20231108
  2. DESOREN [Concomitant]
     Indication: Product used for unknown indication
     Dosage: 30 MG, QD,21 DAYS PLUS 7 DAYS PAUSE (ANTI BABY PILLS) FOR 10 YEARS
     Route: 065
  3. VALDOXAN [Concomitant]
     Active Substance: AGOMELATINE
     Indication: Product used for unknown indication
     Dosage: 50 MG, QD, FOR 2 YEARS
     Route: 065
     Dates: start: 2021

REACTIONS (2)
  - Disease progression [Unknown]
  - Paraesthesia [Recovered/Resolved]

NARRATIVE: CASE EVENT DATE: 20150821
